FAERS Safety Report 17874981 (Version 1)
Quarter: 2020Q2

REPORT INFORMATION
  Report Type: Spontaneous
  Country: US (occurrence: US)
  Receive Date: 20200608
  Receipt Date: 20200608
  Transmission Date: 20200714
  Serious: No
  Sender: FDA-Public Use
  Company Number: None

PATIENT
  Sex: Female

DRUGS (1)
  1. PACLITAXEL MDV (30MG/5ML) [Suspect]
     Active Substance: PACLITAXEL
     Indication: BREAST CANCER FEMALE
     Route: 042
     Dates: start: 20191106

REACTIONS (5)
  - Laboratory test abnormal [None]
  - Arthralgia [None]
  - Skin discolouration [None]
  - Pain in extremity [None]
  - Insomnia [None]
